FAERS Safety Report 7770716-8 (Version None)
Quarter: 2011Q3

REPORT INFORMATION
  Report Type: 
  Country: None (occurrence: None)
  Receive Date: 20110922
  Receipt Date: 20101028
  Transmission Date: 20111222
  Serious: No
  Sender: FDA-Public Use
  Company Number: US-ASTRAZENECA-2010SE51893

PATIENT
  Age: 53 Year
  Sex: Male

DRUGS (3)
  1. LUNESTA [Concomitant]
  2. TRAZODONE HYDROCHLORIDE [Concomitant]
  3. SEROQUEL [Suspect]
     Route: 048
     Dates: start: 20000101

REACTIONS (8)
  - SEXUAL DYSFUNCTION [None]
  - HYPERHIDROSIS [None]
  - FATIGUE [None]
  - HEADACHE [None]
  - BLOOD GLUCOSE INCREASED [None]
  - BLOOD TRIGLYCERIDES INCREASED [None]
  - CONTUSION [None]
  - CONSTIPATION [None]
